FAERS Safety Report 25489943 (Version 1)
Quarter: 2025Q2

REPORT INFORMATION
  Report Type: Report from Study
  Country: US (occurrence: US)
  Receive Date: 20250628
  Receipt Date: 20250628
  Transmission Date: 20250717
  Serious: Yes (Other)
  Sender: ABBVIE
  Company Number: US-ABBVIE-6340576

PATIENT
  Age: 23 Year
  Sex: Male

DRUGS (1)
  1. SKYRIZI [Suspect]
     Active Substance: RISANKIZUMAB-RZAA
     Indication: Crohn^s disease
     Route: 058
     Dates: start: 202501

REACTIONS (3)
  - Intestinal resection [Unknown]
  - Abdominal pain upper [Recovering/Resolving]
  - Postoperative adhesion [Unknown]

NARRATIVE: CASE EVENT DATE: 20250101
